FAERS Safety Report 17992599 (Version 2)
Quarter: 2020Q3

REPORT INFORMATION
  Report Type: Report from Study
  Country: US (occurrence: US)
  Receive Date: 20200707
  Receipt Date: 20200923
  Transmission Date: 20201103
  Serious: Yes (Death, Hospitalization, Other)
  Sender: FDA-Public Use
  Company Number: NVSC2020US188354

PATIENT
  Sex: Female

DRUGS (1)
  1. MAYZENT [Suspect]
     Active Substance: SIPONIMOD
     Indication: PRODUCT USED FOR UNKNOWN INDICATION
     Dosage: 2 MG
     Route: 065

REACTIONS (6)
  - Asthenia [Unknown]
  - Hypertension [Unknown]
  - Basal ganglia infarction [Unknown]
  - Confusional state [Unknown]
  - Cerebrovascular accident [Unknown]
  - Death [Fatal]
